FAERS Safety Report 7721555-5 (Version None)
Quarter: 2011Q3

REPORT INFORMATION
  Report Type: 
  Country: None (occurrence: None)
  Receive Date: 20110831
  Receipt Date: 20110823
  Transmission Date: 20111222
  Serious: Yes (Hospitalization, Other)
  Sender: FDA-Public Use
  Company Number: FR-PFIZER INC-2011200552

PATIENT
  Age: 83 Year
  Sex: Male

DRUGS (11)
  1. FUROSEMIDE [Suspect]
     Dosage: 20 MG, UNK
     Route: 048
     Dates: start: 20110712
  2. RAMIPRIL [Concomitant]
  3. SPIRIVA [Concomitant]
  4. PANTOPRAZOLE [Suspect]
     Dosage: 20 MG, DAILY
     Route: 048
     Dates: start: 20110706
  5. BISOPROLOL FUMARATE [Concomitant]
  6. PRAZEPAM [Concomitant]
  7. FUROSEMIDE [Suspect]
     Dosage: 40 MG, UNK
     Route: 048
     Dates: start: 20110711
  8. GLUCOPHAGE [Concomitant]
  9. PRAVASTATIN [Concomitant]
  10. ASPIRIN [Concomitant]
  11. SINTROM [Concomitant]

REACTIONS (1)
  - INAPPROPRIATE ANTIDIURETIC HORMONE SECRETION [None]
